FAERS Safety Report 8608671 (Version 2)
Quarter: 2012Q4

REPORT INFORMATION
  Report Type: Report from Study
  Country: JP (occurrence: JP)
  Receive Date: 20120608
  Receipt Date: 20121004
  Transmission Date: 20130627
  Serious: Yes (Death)
  Sender: FDA-Public Use
  Company Number: JP-ROCHE-1075586

PATIENT
  Age: 95 Year
  Sex: Female

DRUGS (1)
  1. MIRCERA [Suspect]
     Indication: NEPHROGENIC ANAEMIA
     Route: 058
     Dates: start: 20120228, end: 20120415

REACTIONS (1)
  - Renal failure chronic [Fatal]
